FAERS Safety Report 7471211-6 (Version None)
Quarter: 2011Q2

REPORT INFORMATION
  Report Type: 
  Country: None (occurrence: None)
  Receive Date: 20110510
  Receipt Date: 20110427
  Transmission Date: 20111010
  Serious: Yes (Hospitalization)
  Sender: FDA-Public Use
  Company Number: US-CELGENEUS-AX257-10-0642

PATIENT
  Age: 76 Year
  Sex: Female
  Weight: 79 kg

DRUGS (3)
  1. ABRAXANE [Suspect]
     Indication: SQUAMOUS CELL CARCINOMA OF THE CERVIX
     Dosage: 125 MILLIGRAM/SQ. METER
     Route: 051
     Dates: start: 20100819
  2. WHOLE BLOOD [Concomitant]
     Route: 051
     Dates: start: 20101108
  3. ABRAXANE [Suspect]
     Dosage: 125 MILLIGRAM/SQ. METER
     Route: 051
     Dates: start: 20101021, end: 20101104

REACTIONS (6)
  - PNEUMONIA [None]
  - DEHYDRATION [None]
  - CYSTITIS [None]
  - URINARY TRACT INFECTION [None]
  - URINARY BLADDER HAEMORRHAGE [None]
  - FATIGUE [None]
